FAERS Safety Report 12092032 (Version 1)
Quarter: 2016Q1

REPORT INFORMATION
  Report Type: Report from Study
  Country: US (occurrence: US)
  Receive Date: 20160219
  Receipt Date: 20160219
  Transmission Date: 20160526
  Serious: No
  Sender: FDA-Public Use
  Company Number: US-AMGEN-USASL2016017517

PATIENT
  Age: 58 Year
  Sex: Female

DRUGS (1)
  1. ENBREL [Suspect]
     Active Substance: ETANERCEPT
     Indication: RHEUMATOID ARTHRITIS
     Dosage: 50MG X 1 WEEKLY
     Route: 065
     Dates: start: 20160124

REACTIONS (5)
  - Device issue [Unknown]
  - Headache [Unknown]
  - Injection site pain [Unknown]
  - Wrong technique in product usage process [Unknown]
  - Injection site erythema [Not Recovered/Not Resolved]

NARRATIVE: CASE EVENT DATE: 2016
